FAERS Safety Report 8951051 (Version 3)
Quarter: 2013Q1

REPORT INFORMATION
  Report Type: Report from Study
  Country: JP (occurrence: JP)
  Receive Date: 20121207
  Receipt Date: 20130102
  Transmission Date: 20140127
  Serious: Yes (Hospitalization)
  Sender: FDA-Public Use
  Company Number: JP-PFIZER INC-2012296926

PATIENT
  Age: 57 Year
  Sex: Female
  Weight: 89 kg

DRUGS (8)
  1. TOFACITINIB CITRATE [Suspect]
     Indication: RHEUMATOID ARTHRITIS
     Dosage: 5 MG, 2X/DAY
     Route: 048
     Dates: start: 20100325, end: 20121126
  2. ETODOLAC [Concomitant]
     Indication: RHEUMATOID ARTHRITIS
     Dosage: 200 MG, 2X/DAY
     Route: 048
     Dates: start: 20090521
  3. TALION [Concomitant]
     Indication: RHINITIS ALLERGIC
     Dosage: 10 MG/DAY
     Route: 048
     Dates: start: 20120807
  4. HALCION [Concomitant]
     Indication: INSOMNIA
     Dosage: 0.25 MG/DAY
     Route: 048
     Dates: start: 20120807
  5. CARDENALIN [Concomitant]
     Indication: HYPERTENSION
     Dosage: 4 MG/DAY
     Route: 048
     Dates: start: 2001
  6. DIOVANE [Concomitant]
     Indication: HYPERTENSION
     Dosage: 160 MG/DAY
     Route: 048
     Dates: start: 2001
  7. AMLODIPINE [Concomitant]
     Indication: HYPERTENSION
     Dosage: 5 MG/DAY
     Route: 048
     Dates: start: 2010
  8. HYALEIN [Concomitant]
     Indication: SJOGREN^S SYNDROME
     Dosage: AN APPROPRIATE DOSE PER DAY
     Route: 047
     Dates: start: 20100908

REACTIONS (1)
  - Haemangioma [Recovered/Resolved]
